FAERS Safety Report 5928714-2 (Version None)
Quarter: 2008Q4

REPORT INFORMATION
  Report Type: 
  Country: None (occurrence: None)
  Receive Date: 20081023
  Receipt Date: 20080902
  Transmission Date: 20090506
  Serious: Yes (Hospitalization)
  Sender: FDA-Public Use
  Company Number: FR-WYE-H06474008

PATIENT
  Age: 85 Year
  Sex: Male

DRUGS (3)
  1. CORDARONE [Suspect]
     Route: 048
     Dates: start: 20080602, end: 20080615
  2. NEXIUM [Concomitant]
     Indication: OESOPHAGITIS
     Route: 048
     Dates: end: 20080615
  3. CARDENSIEL [Suspect]
     Route: 048
     Dates: start: 20080602, end: 20080615

REACTIONS (6)
  - CARDIAC FAILURE [None]
  - CARDIO-RESPIRATORY ARREST [None]
  - CYTOLYTIC HEPATITIS [None]
  - HEPATIC ENCEPHALOPATHY [None]
  - PROTHROMBIN TIME SHORTENED [None]
  - THROMBOCYTOPENIA [None]
